FAERS Safety Report 20085350 (Version 1)
Quarter: 2021Q4

REPORT INFORMATION
  Report Type: Spontaneous
  Country: RU (occurrence: RU)
  Receive Date: 20211118
  Receipt Date: 20211118
  Transmission Date: 20220303
  Serious: Yes (Death, Life-Threatening, Hospitalization)
  Sender: FDA-Public Use
  Company Number: RU-JNJFOC-20211121735

PATIENT
  Age: 62 Year
  Sex: Male
  Weight: 75 kg

DRUGS (6)
  1. IMBRUVICA [Suspect]
     Active Substance: IBRUTINIB
     Indication: Chronic lymphocytic leukaemia
     Route: 048
     Dates: start: 20210216, end: 20210308
  2. ALLOPURINOL [Concomitant]
     Active Substance: ALLOPURINOL
     Indication: Hyperuricaemia
     Route: 048
     Dates: start: 201903, end: 20210309
  3. ALBUMIN HUMAN [Concomitant]
     Active Substance: ALBUMIN HUMAN
     Indication: Hyperuricaemia
     Dosage: SOLUTION ALBUMIN 20 PERCENT 100 ML.
     Route: 041
     Dates: start: 20210310, end: 20210318
  4. TRAMADOL [Concomitant]
     Active Substance: TRAMADOL
     Indication: Product used for unknown indication
     Dosage: SOLUTION TRAMADOL 2.0 ML
     Route: 030
     Dates: start: 20210310, end: 20210315
  5. NADROPARIN CALCIUM [Concomitant]
     Active Substance: NADROPARIN CALCIUM
     Indication: Thrombosis prophylaxis
     Dosage: SOLUTION NADROPARIN CALCIUM 0.3 ML
     Route: 058
     Dates: start: 20210310, end: 20210318
  6. OMEPRAZOLE [Concomitant]
     Active Substance: OMEPRAZOLE
     Indication: Prophylaxis against gastrointestinal ulcer
     Route: 042
     Dates: start: 20210310, end: 20210318

REACTIONS (5)
  - Toxic epidermal necrolysis [Fatal]
  - Pneumonia [Fatal]
  - Myocardial necrosis [Fatal]
  - Pulmonary oedema [Fatal]
  - Oedema [Fatal]

NARRATIVE: CASE EVENT DATE: 20210305
